FAERS Safety Report 16454966 (Version 1)
Quarter: 2019Q2

REPORT INFORMATION
  Report Type: Spontaneous
  Country: US (occurrence: US)
  Receive Date: 20190619
  Receipt Date: 20190619
  Transmission Date: 20190711
  Serious: No
  Sender: FDA-Public Use
  Company Number: US-ROCHE-2210980

PATIENT
  Sex: Female

DRUGS (11)
  1. CLOBETASOL [Concomitant]
     Active Substance: CLOBETASOL
  2. ACTEMRA [Suspect]
     Active Substance: TOCILIZUMAB
     Indication: RHEUMATOID ARTHRITIS
     Route: 058
     Dates: start: 20160714
  3. PREDNISONE. [Concomitant]
     Active Substance: PREDNISONE
  4. ECONAZOLE NITRATE. [Concomitant]
     Active Substance: ECONAZOLE NITRATE
  5. FOLIC ACID. [Concomitant]
     Active Substance: FOLIC ACID
  6. ARAVA [Concomitant]
     Active Substance: LEFLUNOMIDE
  7. MOBIC [Concomitant]
     Active Substance: MELOXICAM
  8. DETROL [Concomitant]
     Active Substance: TOLTERODINE TARTRATE
  9. CONCERTA [Concomitant]
     Active Substance: METHYLPHENIDATE HYDROCHLORIDE
  10. METHOTREXATE. [Concomitant]
     Active Substance: METHOTREXATE
  11. PAXIL [Concomitant]
     Active Substance: PAROXETINE HYDROCHLORIDE

REACTIONS (1)
  - Rheumatoid arthritis [Unknown]
